FAERS Safety Report 6447161-0 (Version None)
Quarter: 2009Q4

REPORT INFORMATION
  Report Type: 
  Country: None (occurrence: None)
  Receive Date: 20091119
  Receipt Date: 20091112
  Transmission Date: 20100525
  Serious: Yes (Other)
  Sender: FDA-Public Use
  Company Number: US-PFIZER INC-2009276445

PATIENT
  Sex: Female
  Weight: 50 kg

DRUGS (5)
  1. GEODON [Suspect]
     Indication: MOOD SWINGS
     Route: 048
     Dates: start: 20090801, end: 20090918
  2. PROZAC [Concomitant]
  3. MULTI-VITAMIN [Concomitant]
  4. ADDERALL 10 [Concomitant]
  5. FISH OIL [Concomitant]

REACTIONS (13)
  - AGITATION [None]
  - ANGINA PECTORIS [None]
  - HEARING IMPAIRED [None]
  - HYPERHIDROSIS [None]
  - MUSCLE RIGIDITY [None]
  - MUSCULOSKELETAL STIFFNESS [None]
  - MYALGIA [None]
  - PALPITATIONS [None]
  - SOMNOLENCE [None]
  - THIRST [None]
  - TREMOR [None]
  - URINARY RETENTION [None]
  - WEIGHT DECREASED [None]
